FAERS Safety Report 8033261-0 (Version None)
Quarter: 2012Q1

REPORT INFORMATION
  Report Type: 
  Country: None (occurrence: None)
  Receive Date: 20120110
  Receipt Date: 20120105
  Transmission Date: 20120608
  Serious: Yes (Hospitalization)
  Sender: FDA-Public Use
  Company Number: FR-PFIZER INC-2012002833

PATIENT
  Age: 44 Year
  Sex: Male

DRUGS (8)
  1. LASIX [Interacting]
     Dosage: 40 MG, 1X/DAY
     Route: 048
     Dates: end: 20111123
  2. PROPRANOLOL [Concomitant]
     Dosage: 160 MG, 1X/DAY
     Route: 048
  3. SUBUTEX [Concomitant]
     Dosage: 2 MG, 1X/DAY
     Route: 048
  4. IBUPROFEN [Suspect]
     Indication: ARTHRALGIA
     Dosage: 1 DF, 2X/DAY
     Route: 048
     Dates: start: 20111116, end: 20111120
  5. RIFAXIMIN [Concomitant]
     Dosage: 1 DF, 5 TIMES DAILY
     Route: 048
  6. NORFLOXACIN [Concomitant]
     Dosage: 400 MG, 1X/DAY
     Route: 048
  7. DUPHALAC [Concomitant]
     Dosage: 1 DF, 2X/DAY
     Route: 048
  8. ALDACTONE [Interacting]
     Dosage: 100 MG, 1X/DAY
     Route: 048
     Dates: end: 20111123

REACTIONS (3)
  - SELF-MEDICATION [None]
  - RENAL FAILURE ACUTE [None]
  - POTENTIATING DRUG INTERACTION [None]
